FAERS Safety Report 4341858-4 (Version None)
Quarter: 2004Q2

REPORT INFORMATION
  Report Type: 
  Country: None (occurrence: None)
  Receive Date: 20040415
  Receipt Date: 20040326
  Transmission Date: 20050107
  Serious: Yes (Other)
  Sender: FDA-Public Use
  Company Number: US_0402100535

PATIENT
  Age: 56 Year
  Sex: Female
  Weight: 96 kg

DRUGS (6)
  1. ZYPREXA [Suspect]
     Dates: start: 20021001, end: 20031001
  2. PROZAC [Suspect]
     Indication: DEPRESSION
  3. LEXAPRO [Concomitant]
  4. TOPAMAX [Concomitant]
  5. LORAZEPAM [Concomitant]
  6. DEPAKOTE [Concomitant]

REACTIONS (12)
  - ABDOMINAL DISTENSION [None]
  - BREAST CANCER FEMALE [None]
  - DEPRESSION [None]
  - DRUG INEFFECTIVE [None]
  - DYSPNOEA [None]
  - FOOD CRAVING [None]
  - HYPERTENSION [None]
  - INCREASED APPETITE [None]
  - PAIN [None]
  - RENAL DISORDER [None]
  - TINNITUS [None]
  - WEIGHT INCREASED [None]
